FAERS Safety Report 9643437 (Version 2)
Quarter: 2013Q4

REPORT INFORMATION
  Report Type: Report from Study
  Country: US (occurrence: US)
  Receive Date: 20131024
  Receipt Date: 20131104
  Transmission Date: 20140711
  Serious: Yes (Death, Life-Threatening, Hospitalization, Disabling)
  Sender: FDA-Public Use
  Company Number: US-ACTELION-A-NJ2013-90036

PATIENT
  Age: 51 Year
  Sex: Female

DRUGS (12)
  1. VELETRI [Suspect]
     Indication: PULMONARY ARTERIAL HYPERTENSION
     Dosage: 34 NG/KG, PER MIN
     Route: 041
     Dates: start: 20110302, end: 20131022
  2. TRACLEER [Suspect]
     Indication: PULMONARY ARTERIAL HYPERTENSION
     Dosage: 125 MG, BID
     Route: 048
     Dates: start: 20070914
  3. ADCIRCA [Concomitant]
  4. COUMADIN [Concomitant]
  5. FOSAMAX [Concomitant]
  6. NEURONTIN [Concomitant]
  7. XANAX [Concomitant]
  8. BACLOFEN [Concomitant]
  9. CLONIDINE [Concomitant]
  10. FLUOXETINE [Concomitant]
  11. KEPPRA [Concomitant]
  12. LEVOTHYROXINE [Concomitant]

REACTIONS (10)
  - Respiratory failure [Fatal]
  - Device related infection [Unknown]
  - Unresponsive to stimuli [Not Recovered/Not Resolved]
  - Mechanical ventilation [Unknown]
  - Loss of consciousness [Unknown]
  - Sepsis [Unknown]
  - Oxygen saturation decreased [Not Recovered/Not Resolved]
  - Dyspnoea [Not Recovered/Not Resolved]
  - Device malfunction [Unknown]
  - Device infusion issue [Unknown]
